FAERS Safety Report 9020715 (Version 1)
Quarter: 2013Q1

REPORT INFORMATION
  Report Type: Spontaneous
  Country: None (occurrence: US)
  Receive Date: 20130119
  Receipt Date: 20130119
  Transmission Date: 20140127
  Serious: No
  Sender: FDA-Public Use
  Company Number: US-ALLERGAN-1206173US

PATIENT
  Age: 85 Year
  Sex: Female

DRUGS (3)
  1. BOTOX COSMETIC [Suspect]
     Indication: SKIN WRINKLING
     Dosage: UNK
     Route: 030
     Dates: start: 20120418, end: 20120418
  2. JUVEDERM [Suspect]
     Indication: PRODUCT USED FOR UNKNOWN INDICATION
     Dosage: UNK
     Route: 051
     Dates: start: 20120418, end: 20120418
  3. PEPCID [Concomitant]
     Indication: DYSPEPSIA

REACTIONS (6)
  - Eye disorder [Not Recovered/Not Resolved]
  - Photopsia [Not Recovered/Not Resolved]
  - Seasonal allergy [Unknown]
  - Skin tightness [Recovering/Resolving]
  - Visual impairment [Not Recovered/Not Resolved]
  - Vision blurred [Not Recovered/Not Resolved]
